FAERS Safety Report 5120885-3 (Version None)
Quarter: 2006Q4

REPORT INFORMATION
  Report Type: 
  Country: None (occurrence: None)
  Receive Date: 20061005
  Receipt Date: 20060925
  Transmission Date: 20070319
  Serious: Yes (Other)
  Sender: FDA-Public Use
  Company Number: PHEH2006US12244

PATIENT

DRUGS (6)
  1. ZELNORM [Suspect]
     Indication: IRRITABLE BOWEL SYNDROME
     Dosage: 6 MG, BID
     Route: 048
     Dates: start: 20040101, end: 20060501
  2. ZELNORM [Suspect]
     Dosage: 6 MG, BID
     Route: 048
     Dates: start: 20060701, end: 20060926
  3. TRAVATAN [Concomitant]
     Indication: GLAUCOMA
     Dosage: UNK, UNK
     Dates: start: 20010101, end: 20060501
  4. TRAVATAN [Concomitant]
     Dates: start: 20060701
  5. COSOPT [Concomitant]
     Indication: GLAUCOMA
     Dosage: UNK, UNK
     Dates: start: 20010101, end: 20060501
  6. COSOPT [Concomitant]
     Dates: start: 20060701

REACTIONS (5)
  - BREAST CANCER [None]
  - CYTOMEGALOVIRUS INFECTION [None]
  - LIVER FUNCTION TEST ABNORMAL [None]
  - MALIGNANT BREAST LUMP REMOVAL [None]
  - RADIOTHERAPY [None]
